FAERS Safety Report 16806876 (Version 3)
Quarter: 2019Q4

REPORT INFORMATION
  Report Type: Spontaneous
  Country: US (occurrence: US)
  Receive Date: 20190913
  Receipt Date: 20191108
  Transmission Date: 20200122
  Serious: Yes (Hospitalization, Other)
  Sender: FDA-Public Use
  Company Number: US-TEVA-2019-US-1106888

PATIENT
  Sex: Female

DRUGS (28)
  1. CALCIUM [Concomitant]
     Active Substance: CALCIUM
  2. EFFEXOR [Concomitant]
     Active Substance: VENLAFAXINE HYDROCHLORIDE
  3. METHYLPHENID [Concomitant]
     Active Substance: METHYLPHENIDATE
  4. TOPIRAMATE. [Concomitant]
     Active Substance: TOPIRAMATE
  5. VITAMIN D3 [Concomitant]
     Active Substance: CHOLECALCIFEROL
  6. REGLAN [Concomitant]
     Active Substance: METOCLOPRAMIDE HYDROCHLORIDE
  7. DONEPEZIL. [Concomitant]
     Active Substance: DONEPEZIL
     Route: 065
  8. VENLAFAXINE [Concomitant]
     Active Substance: VENLAFAXINE HYDROCHLORIDE
  9. DIAZEPAM. [Concomitant]
     Active Substance: DIAZEPAM
  10. MELATONIN [Concomitant]
     Active Substance: MELATONIN
  11. UREA. [Concomitant]
     Active Substance: UREA
     Route: 065
  12. MAXALT [Concomitant]
     Active Substance: RIZATRIPTAN BENZOATE
  13. ESTRACE [Concomitant]
     Active Substance: ESTRADIOL
  14. EURA [Concomitant]
  15. IRON [Concomitant]
     Active Substance: IRON
     Route: 065
  16. GABAPENTIN. [Concomitant]
     Active Substance: GABAPENTIN
  17. RIZATRIPTAN. [Concomitant]
     Active Substance: RIZATRIPTAN
  18. IRON [Concomitant]
     Active Substance: IRON
  19. LEVOTHYROXIN [Concomitant]
     Active Substance: LEVOTHYROXINE
  20. ONDANSETRON [Concomitant]
     Active Substance: ONDANSETRON
  21. OXYCODONE [Concomitant]
     Active Substance: OXYCODONE
  22. VITAMIN E [Concomitant]
     Active Substance: .ALPHA.-TOCOPHEROL
  23. COPAXONE [Suspect]
     Active Substance: GLATIRAMER ACETATE
     Indication: MULTIPLE SCLEROSIS
     Route: 058
     Dates: start: 20150519
  24. ALPRAZOLAM. [Concomitant]
     Active Substance: ALPRAZOLAM
  25. ERYTHROMYCIN. [Concomitant]
     Active Substance: ERYTHROMYCIN
  26. ESOMEPRA MAG [Concomitant]
  27. EURAX [Concomitant]
     Active Substance: CROTAMITON
  28. ELETRIPTAN. [Concomitant]
     Active Substance: ELETRIPTAN

REACTIONS (8)
  - Depression [Not Recovered/Not Resolved]
  - Migraine [Not Recovered/Not Resolved]
  - Injection site bruising [Not Recovered/Not Resolved]
  - Memory impairment [Not Recovered/Not Resolved]
  - Vertigo [Not Recovered/Not Resolved]
  - Malaise [Not Recovered/Not Resolved]
  - Suicidal ideation [Not Recovered/Not Resolved]
  - Speech disorder [Not Recovered/Not Resolved]
